FAERS Safety Report 5951501-6 (Version None)
Quarter: 2008Q4

REPORT INFORMATION
  Report Type: 
  Country: None (occurrence: None)
  Receive Date: 20081110
  Receipt Date: 20081027
  Transmission Date: 20090506
  Serious: Yes (Death)
  Sender: FDA-Public Use
  Company Number: 2008AL011606

PATIENT
  Age: 73 Year
  Sex: Female

DRUGS (9)
  1. METFORMIN HCL [Suspect]
     Indication: DIABETES MELLITUS
     Dosage: PO
     Route: 048
     Dates: start: 20020101, end: 20080922
  2. LANSOPRAZOLE [Concomitant]
  3. ATORVASTATIN CALCIUM [Concomitant]
  4. PREDNISOLONE [Concomitant]
  5. NICORANDIL [Concomitant]
  6. TEMAZEPAM [Concomitant]
  7. WARFARIN SODIUM [Concomitant]
  8. FENTANYL [Concomitant]
  9. ACETAMINOPHEN W/ CODEINE [Concomitant]

REACTIONS (3)
  - LACTIC ACIDOSIS [None]
  - NAUSEA [None]
  - VOMITING [None]
